FAERS Safety Report 9830105 (Version 1)
Quarter: 2014Q1

REPORT INFORMATION
  Report Type: Spontaneous
  Country: US (occurrence: US)
  Receive Date: 20140120
  Receipt Date: 20140120
  Transmission Date: 20141002
  Serious: Yes (Hospitalization)
  Sender: FDA-Public Use
  Company Number: US-BAYER-2014-007628

PATIENT
  Age: 19 Year
  Sex: Female
  Weight: 93 kg

DRUGS (9)
  1. BEYAZ [Suspect]
  2. YAZ [Suspect]
  3. METRONIDAZOLE [Concomitant]
     Dosage: 500 MG, BID FOR 7 DAYS
     Route: 048
  4. CIPROFLOX [Concomitant]
     Dosage: 0.3 %, UNK
     Route: 047
  5. DEXAMETHASONE W/TOBRAMYCIN [Concomitant]
     Dosage: ONE DROP INTO LEFT EYE FOUR TIMES DAILY
     Route: 047
  6. METROGEL [Concomitant]
     Dosage: 75 UNK, 1 APPLICATORFUL FOR 7 DAYS
     Route: 067
  7. XANAX [Concomitant]
  8. MORPHINE [Concomitant]
  9. PERCOCET [Concomitant]

REACTIONS (1)
  - Pulmonary embolism [None]
